FAERS Safety Report 13464680 (Version 1)
Quarter: 2017Q2

REPORT INFORMATION
  Report Type: Spontaneous
  Country: US (occurrence: US)
  Receive Date: 20170420
  Receipt Date: 20170420
  Transmission Date: 20170830
  Serious: Yes (Other)
  Sender: FDA-Public Use
  Company Number: US-ROCHE-727626

PATIENT
  Age: 39 Year
  Sex: Male
  Weight: 99.8 kg

DRUGS (2)
  1. ACCUTANE [Suspect]
     Active Substance: ISOTRETINOIN
     Indication: ACNE
     Route: 065
     Dates: start: 199302, end: 199303
  2. ACCUTANE [Suspect]
     Active Substance: ISOTRETINOIN
     Route: 065

REACTIONS (10)
  - Abdominal pain [Unknown]
  - Rectal haemorrhage [Unknown]
  - Dysuria [Unknown]
  - Colitis ulcerative [Unknown]
  - Nausea [Unknown]
  - Pain of skin [Unknown]
  - Blood cholesterol increased [Unknown]
  - Lip dry [Unknown]
  - Depression [Unknown]
  - Pyuria [Unknown]

NARRATIVE: CASE EVENT DATE: 1993
